FAERS Safety Report 22172555 (Version 1)
Quarter: 2023Q2

REPORT INFORMATION
  Report Type: Spontaneous
  Country: FR (occurrence: FR)
  Receive Date: 20230404
  Receipt Date: 20230404
  Transmission Date: 20230722
  Serious: Yes (Hospitalization)
  Sender: FDA-Public Use
  Company Number: None

PATIENT
  Age: 20 Year
  Sex: Female
  Weight: 49 kg

DRUGS (1)
  1. KETOPROFEN [Suspect]
     Active Substance: KETOPROFEN
     Indication: Pain management
     Dosage: 100 MILLIGRAM, TOTAL
     Route: 048
     Dates: start: 202302

REACTIONS (1)
  - Meningococcal bacteraemia [Recovering/Resolving]

NARRATIVE: CASE EVENT DATE: 20230304
